FAERS Safety Report 10257508 (Version 1)
Quarter: 2014Q2

REPORT INFORMATION
  Report Type: Spontaneous
  Country: FR (occurrence: None)
  Receive Date: 20140620
  Receipt Date: 20140620
  Transmission Date: 20141212
  Serious: Yes (Disabling)
  Sender: FDA-Public Use
  Company Number: SYM-2014-22312

PATIENT
  Age: 72 Year
  Sex: Female

DRUGS (6)
  1. FLUOROURACIL [Suspect]
     Indication: COLON CANCER
     Dosage: 3800 MG, EVERY CYCLE, INTRAVENOUS (NOT OTHERWISE SPECIFIED)
     Route: 042
     Dates: start: 20080827, end: 20090116
  2. FLUOROURACIL [Suspect]
     Indication: COLON CANCER
     Dosage: 3800 MG, EVERY CYCLE, INTRAVENOUS (NOT OTHERWISE SPECIFIED)
     Route: 042
     Dates: start: 20080827, end: 20090116
  3. OXALIPLATIN [Suspect]
     Indication: COLON CANCER
     Dosage: 120 MG, EVERY CYCLE, INTRAVENOUS DRIP
     Route: 041
     Dates: start: 20080827, end: 20090116
  4. OXALIPLATIN [Suspect]
     Indication: COLON CANCER
     Dosage: 120 MG, EVERY CYCLE, INTRAVENOUS DRIP
     Route: 041
     Dates: start: 20080827, end: 20090116
  5. METHYLPREDNISOLONE (METHYLPREDNISOLONE) [Concomitant]
  6. ZOPHREN (ONDANSETRON HYDROCHLORIDE) (ONDANSETRON HYDROCHLORIDE) [Concomitant]

REACTIONS (4)
  - Neuropathy peripheral [None]
  - Disability [None]
  - Malignant neoplasm progression [None]
  - Colon cancer [None]
